FAERS Safety Report 19768146 (Version 3)
Quarter: 2022Q1

REPORT INFORMATION
  Report Type: Other
  Country: DE (occurrence: None)
  Receive Date: 20210831
  Receipt Date: 20220313
  Transmission Date: 20220423
  Serious: Yes (Other)
  Sender: FDA-Public Use
  Company Number: DE-ROCHE-2569284

PATIENT
  Age: 27 Year
  Sex: Female

DRUGS (5)
  1. OCREVUS [Suspect]
     Active Substance: OCRELIZUMAB
     Indication: Relapsing-remitting multiple sclerosis
     Route: 042
     Dates: start: 201908
  2. OCREVUS [Suspect]
     Active Substance: OCRELIZUMAB
     Route: 042
     Dates: start: 201909
  3. OCREVUS [Suspect]
     Active Substance: OCRELIZUMAB
     Dosage: FIRST MAINTENANCE DOSE
     Route: 042
     Dates: start: 20200213
  4. OCREVUS [Suspect]
     Active Substance: OCRELIZUMAB
     Route: 042
     Dates: start: 20210921, end: 20210921
  5. KESIMPTA [Concomitant]
     Active Substance: OFATUMUMAB
     Dates: start: 20210921

REACTIONS (4)
  - Noninfective encephalitis [Recovered/Resolved]
  - Fatigue [Recovered/Resolved]
  - Influenza like illness [Recovered/Resolved]
  - SARS-CoV-2 test positive [Recovered/Resolved]

NARRATIVE: CASE EVENT DATE: 20200401
